FAERS Safety Report 7383317-0 (Version None)
Quarter: 2011Q1

REPORT INFORMATION
  Report Type: 
  Country: None (occurrence: None)
  Receive Date: 20110325
  Receipt Date: 20110325
  Transmission Date: 20110831
  Serious: Yes (Disabling)
  Sender: FDA-Public Use
  Company Number: None

PATIENT
  Age: 76 Year
  Sex: Male
  Weight: 88.905 kg

DRUGS (1)
  1. LEVOFLOXACIN [Suspect]
     Indication: LUNG INFILTRATION
     Dosage: ONCE IV
     Route: 042
     Dates: start: 20101209, end: 20101213

REACTIONS (1)
  - HYPOGLYCAEMIA [None]
